FAERS Safety Report 12499053 (Version 1)
Quarter: 2016Q2

REPORT INFORMATION
  Report Type: Spontaneous
  Country: US (occurrence: US)
  Receive Date: 20160627
  Receipt Date: 20160627
  Transmission Date: 20160815
  Serious: No
  Sender: FDA-Public Use
  Company Number: US-009507513-1606USA006775

PATIENT
  Age: 22 Year
  Sex: Female

DRUGS (4)
  1. NYSTATIN. [Concomitant]
     Active Substance: NYSTATIN
  2. ADDERALL [Concomitant]
     Active Substance: AMPHETAMINE ASPARTATE\AMPHETAMINE SULFATE\DEXTROAMPHETAMINE SACCHARATE\DEXTROAMPHETAMINE SULFATE
     Route: 048
  3. BELSOMRA [Suspect]
     Active Substance: SUVOREXANT
     Indication: INSOMNIA
     Dosage: 10 MG/ AS NEEDED
     Route: 048
     Dates: start: 20151011
  4. MALARONE [Concomitant]
     Active Substance: ATOVAQUONE\PROGUANIL HYDROCHLORIDE

REACTIONS (5)
  - Sleep paralysis [Recovering/Resolving]
  - Dizziness [Recovering/Resolving]
  - Sleep terror [Recovering/Resolving]
  - Dizziness [Recovering/Resolving]
  - Intentional product misuse [Unknown]

NARRATIVE: CASE EVENT DATE: 20151011
